FAERS Safety Report 12796692 (Version 2)
Quarter: 2016Q3

REPORT INFORMATION
  Report Type: Spontaneous
  Country: US (occurrence: US)
  Receive Date: 20160929
  Receipt Date: 20160930
  Transmission Date: 20161109
  Serious: Yes (Other)
  Sender: FDA-Public Use
  Company Number: PHHY2016US131067

PATIENT
  Age: 49 Year
  Sex: Male

DRUGS (6)
  1. TRIAMCINOLONE ACETATE [Concomitant]
     Active Substance: TRIAMCINOLONE ACETONIDE
     Indication: PRODUCT USED FOR UNKNOWN INDICATION
  2. LATANOPROST. [Suspect]
     Active Substance: LATANOPROST
     Indication: INTRAOCULAR PRESSURE INCREASED
     Route: 065
  3. BRIMONIDINE [Suspect]
     Active Substance: BRIMONIDINE TARTRATE
     Indication: INTRAOCULAR PRESSURE INCREASED
     Route: 065
  4. PILOCARPINE. [Suspect]
     Active Substance: PILOCARPINE
     Indication: INTRAOCULAR PRESSURE INCREASED
     Route: 065
  5. METHAZOLAMIDE. [Concomitant]
     Active Substance: METHAZOLAMIDE
     Indication: INTRAOCULAR PRESSURE INCREASED
     Route: 065
  6. DORZOLAMIDE/TIMOLOL SANDOZ [Suspect]
     Active Substance: DORZOLAMIDE\TIMOLOL
     Indication: INTRAOCULAR PRESSURE INCREASED
     Route: 065

REACTIONS (1)
  - Drug resistance [Unknown]
